FAERS Safety Report 20300083 (Version 1)
Quarter: 2022Q1

REPORT INFORMATION
  Report Type: Spontaneous
  Country: CA (occurrence: CA)
  Receive Date: 20220105
  Receipt Date: 20220105
  Transmission Date: 20220423
  Serious: Yes (Hospitalization, Other)
  Sender: FDA-Public Use
  Company Number: None

PATIENT
  Age: 68 Year
  Sex: Female

DRUGS (7)
  1. METHOTREXATE [Suspect]
     Active Substance: METHOTREXATE
     Indication: Rheumatoid arthritis
     Route: 048
  2. APIXABAN [Concomitant]
     Active Substance: APIXABAN
     Dosage: 2 EVERY 1 DAY
     Route: 048
  3. DIGOXIN [Concomitant]
     Active Substance: DIGOXIN
     Dosage: 1 EVERY 1 DAY
     Route: 048
  4. FLUTICASONE PROPIONATE [Concomitant]
     Active Substance: FLUTICASONE PROPIONATE
     Dosage: EVERY 1 DAY
     Route: 055
  5. HYDROXYCHLOROQUINE [Concomitant]
     Active Substance: HYDROXYCHLOROQUINE
     Dosage: 1 EVERY 1 DAY
     Route: 048
  6. METOPROLOL TARTRATE [Concomitant]
     Active Substance: METOPROLOL TARTRATE
     Dosage: 2 EVERY 1 DAY
     Route: 048
  7. XELJANZ [Concomitant]
     Active Substance: TOFACITINIB CITRATE
     Indication: Rheumatoid arthritis
     Dosage: 2 EVERY 1 DAY
     Route: 048

REACTIONS (8)
  - Arthralgia [Unknown]
  - Drug intolerance [Unknown]
  - Gait disturbance [Unknown]
  - Impaired healing [Unknown]
  - Impaired self-care [Unknown]
  - Product use issue [Unknown]
  - Rheumatoid arthritis [Unknown]
  - Skin ulcer [Unknown]
